FAERS Safety Report 8122305-3 (Version None)
Quarter: 2012Q1

REPORT INFORMATION
  Report Type: 
  Country: None (occurrence: None)
  Receive Date: 20120208
  Receipt Date: 20120131
  Transmission Date: 20120608
  Serious: Yes (Other)
  Sender: FDA-Public Use
  Company Number: US-JNJFOC-20111001010

PATIENT
  Age: 47 Year
  Sex: Female
  Weight: 127.01 kg

DRUGS (3)
  1. OTHER THERAPEUTIC MEDICATIONS [Concomitant]
     Indication: PRODUCT USED FOR UNKNOWN INDICATION
     Route: 065
  2. BENGAY ULTRA STRENGTH TUBE [Suspect]
     Indication: SKIN MASS
     Dosage: ^SMALL AMOUNT IN THE PALM OF HAND^
     Route: 061
     Dates: start: 20110922, end: 20110923
  3. BENGAY ULTRA STRENGTH TUBE [Suspect]
     Indication: MUSCLE TIGHTNESS
     Dosage: ^SMALL AMOUNT IN THE PALM OF HAND^
     Route: 061
     Dates: start: 20110922, end: 20110923

REACTIONS (7)
  - APPLICATION SITE ERYTHEMA [None]
  - OFF LABEL USE [None]
  - URTICARIA [None]
  - APPLICATION SITE PRURITUS [None]
  - WRONG TECHNIQUE IN DRUG USAGE PROCESS [None]
  - APPLICATION SITE PAIN [None]
  - HERPES ZOSTER [None]
